FAERS Safety Report 6454152-2 (Version None)
Quarter: 2009Q4

REPORT INFORMATION
  Report Type: 
  Country: None (occurrence: None)
  Receive Date: 20091124
  Receipt Date: 20090904
  Transmission Date: 20100525
  Serious: Yes (Hospitalization, Other)
  Sender: FDA-Public Use
  Company Number: JP-MERCK-0907USA02793

PATIENT
  Age: 83 Year
  Sex: Female

DRUGS (6)
  1. FOSAMAX [Suspect]
     Indication: OSTEOPOROSIS
     Route: 048
     Dates: start: 20040101, end: 20090101
  2. ARTIST [Concomitant]
     Indication: HYPERTENSION
     Route: 048
  3. ALDACTONE [Concomitant]
     Indication: HYPERTENSION
     Route: 048
  4. TANATRIL [Concomitant]
     Indication: DIABETES MELLITUS
     Route: 048
  5. SIGMART [Concomitant]
     Indication: ANGINA PECTORIS
     Route: 048
  6. ASPIRIN [Concomitant]
     Indication: ANGINA PECTORIS
     Route: 048

REACTIONS (1)
  - OSTEOMYELITIS [None]
